FAERS Safety Report 17952377 (Version 1)
Quarter: 2020Q2

REPORT INFORMATION
  Report Type: Report from Study
  Country: GB (occurrence: GB)
  Receive Date: 20200626
  Receipt Date: 20200626
  Transmission Date: 20200714
  Serious: Yes (Disabling)
  Sender: FDA-Public Use
  Company Number: GB-PFIZER INC-2020-07183

PATIENT
  Age: 82 Year
  Sex: Male
  Weight: 79.9 kg

DRUGS (13)
  1. CANDESARTAN. [Concomitant]
     Active Substance: CANDESARTAN
     Dosage: 8 MG, AS NEEDED
     Route: 048
     Dates: start: 20200104
  2. CETUXIMAB. [Suspect]
     Active Substance: CETUXIMAB
     Indication: COLORECTAL CANCER METASTATIC
     Dosage: 450 MG, WEEKLY
     Route: 042
     Dates: start: 20191106, end: 20191223
  3. OMEPRAZOLE. [Concomitant]
     Active Substance: OMEPRAZOLE
     Indication: GASTRITIS
     Dosage: 20 MG (20 MG ORAL DOSE)
     Route: 048
     Dates: start: 20110413
  4. PARACETAMOL [Concomitant]
     Active Substance: ACETAMINOPHEN
     Dosage: 4 G, AS NEEDED
     Route: 048
  5. DUTASTERIDE. [Concomitant]
     Active Substance: DUTASTERIDE
     Indication: BENIGN PROSTATIC HYPERPLASIA
     Dosage: 500 MG (500 MG ORAL DOSE)
     Route: 048
     Dates: start: 20190212
  6. PARACETAMOL [Concomitant]
     Active Substance: ACETAMINOPHEN
     Indication: ANALGESIC THERAPY
     Dosage: 4 G, AS NEEDED
     Route: 048
  7. ENCORAFENIB [Suspect]
     Active Substance: ENCORAFENIB
     Indication: COLORECTAL CANCER METASTATIC
     Dosage: 300 MG
     Route: 048
     Dates: start: 20191106, end: 20191230
  8. CETUXIMAB. [Suspect]
     Active Substance: CETUXIMAB
     Dosage: 450 MG (WEEKLY)
     Route: 042
     Dates: start: 20191106, end: 20191223
  9. LOPERAMIDE [Concomitant]
     Active Substance: LOPERAMIDE
     Indication: DIARRHOEA
     Dosage: 2 MG, AS NEEDED
     Route: 048
     Dates: start: 20191107
  10. BINIMETINIB [Suspect]
     Active Substance: BINIMETINIB
     Indication: COLORECTAL CANCER METASTATIC
     Dosage: 45 MG, 2X/DAY
     Route: 048
     Dates: start: 20191106, end: 20191230
  11. CANDESARTAN. [Concomitant]
     Active Substance: CANDESARTAN
     Indication: HYPERTENSION
     Dosage: 12 MG ORAL DOSE
     Route: 048
     Dates: start: 20000111, end: 20191104
  12. CANDESARTAN. [Concomitant]
     Active Substance: CANDESARTAN
     Dosage: 16 MG, 2X/DAY (16 MG, BID (2/DAY))
     Route: 048
     Dates: start: 20191105, end: 20191231
  13. DOXYCYCLINE. [Concomitant]
     Active Substance: DOXYCYCLINE
     Indication: RASH
     Dosage: 100 MG (100 MG ORAL DOSE)
     Route: 048
     Dates: start: 20191120

REACTIONS (1)
  - Acute kidney injury [Recovered/Resolved]

NARRATIVE: CASE EVENT DATE: 20191231
